FAERS Safety Report 23258355 (Version 1)
Quarter: 2023Q4

REPORT INFORMATION
  Report Type: Report from Study
  Country: FR (occurrence: FR)
  Receive Date: 20231204
  Receipt Date: 20231204
  Transmission Date: 20240110
  Serious: Yes (Other)
  Sender: FDA-Public Use
  Company Number: FR-JNJFOC-20231184088

PATIENT
  Age: 24 Year
  Sex: Female

DRUGS (2)
  1. ESKETAMINE [Suspect]
     Active Substance: ESKETAMINE
     Indication: Depression
     Dates: start: 20230620, end: 20230626
  2. ESKETAMINE [Suspect]
     Active Substance: ESKETAMINE
     Dates: start: 20230626, end: 20230904

REACTIONS (1)
  - Suicidal ideation [Recovering/Resolving]

NARRATIVE: CASE EVENT DATE: 20230717
